FAERS Safety Report 16768628 (Version 1)
Quarter: 2019Q3

REPORT INFORMATION
  Report Type: Spontaneous
  Country: US (occurrence: US)
  Receive Date: 20190903
  Receipt Date: 20190903
  Transmission Date: 20191005
  Serious: Yes (Other)
  Sender: FDA-Public Use
  Company Number: US-NOVOPROD-681325

PATIENT
  Age: 69 Year
  Sex: Male

DRUGS (3)
  1. NOVOLOG [Suspect]
     Active Substance: INSULIN ASPART
     Indication: TYPE 2 DIABETES MELLITUS
     Dosage: 6-7 UNITS
     Route: 058
     Dates: start: 2004
  2. NOVOLOG [Suspect]
     Active Substance: INSULIN ASPART
     Dosage: INCREASED DOSE
     Route: 058
  3. LEVEMIR [Suspect]
     Active Substance: INSULIN DETEMIR
     Indication: TYPE 2 DIABETES MELLITUS
     Dosage: UNK
     Route: 065
     Dates: start: 2004

REACTIONS (6)
  - Neoplasm malignant [Unknown]
  - Bladder catheterisation [Unknown]
  - Pruritus generalised [Not Recovered/Not Resolved]
  - Insomnia [Not Recovered/Not Resolved]
  - Blindness unilateral [Unknown]
  - Blood glucose increased [Not Recovered/Not Resolved]

NARRATIVE: CASE EVENT DATE: 201908
